FAERS Safety Report 10338731 (Version 1)
Quarter: 2014Q3

REPORT INFORMATION
  Report Type: Spontaneous
  Country: US (occurrence: None)
  Receive Date: 20140722
  Receipt Date: 20140722
  Transmission Date: 20150326
  Serious: Yes (Hospitalization)
  Sender: FDA-Public Use
  Company Number: None

PATIENT
  Age: 77 Year
  Sex: Female
  Weight: 70.9 kg

DRUGS (2)
  1. TAXOL [Suspect]
     Active Substance: PACLITAXEL
  2. CARBOPLATIN. [Suspect]
     Active Substance: CARBOPLATIN

REACTIONS (7)
  - Abdominal adhesions [None]
  - Internal hernia [None]
  - Haemorrhagic ascites [None]
  - Intestinal ischaemia [None]
  - Small intestinal obstruction [None]
  - Blood lactic acid decreased [None]
  - Gastrointestinal necrosis [None]

NARRATIVE: CASE EVENT DATE: 20140711
